FAERS Safety Report 23391674 (Version 2)
Quarter: 2024Q2

REPORT INFORMATION
  Report Type: Spontaneous
  Country: US (occurrence: US)
  Receive Date: 20240111
  Receipt Date: 20240531
  Transmission Date: 20240716
  Serious: No
  Sender: FDA-Public Use
  Company Number: US-DRL-USA-SPO/USA/23/0188097

PATIENT
  Age: 10 Month
  Sex: Male
  Weight: 5.4 kg

DRUGS (2)
  1. SAPROPTERIN DIHYDROCHLORIDE [Suspect]
     Active Substance: SAPROPTERIN DIHYDROCHLORIDE
     Indication: Hyperphenylalaninaemia
     Dosage: CARTON OF 30 UNIT DOSE PACKET
     Route: 048
  2. SAPROPTERIN DIHYDROCHLORIDE [Suspect]
     Active Substance: SAPROPTERIN DIHYDROCHLORIDE
     Indication: Hyperphenylalaninaemia
     Dosage: ONCE DAILY WITH MEAL
     Route: 048

REACTIONS (3)
  - COVID-19 [Recovering/Resolving]
  - Hypersensitivity [Unknown]
  - Incorrect dose administered [Unknown]
